FAERS Safety Report 6249058-8 (Version None)
Quarter: 2009Q2

REPORT INFORMATION
  Report Type: 
  Country: None (occurrence: None)
  Receive Date: 20090629
  Receipt Date: 20090617
  Transmission Date: 20091009
  Serious: Yes (Hospitalization)
  Sender: FDA-Public Use
  Company Number: FR-AVENTIS-200912269FR

PATIENT
  Age: 77 Year
  Sex: Male

DRUGS (20)
  1. LANTUS [Suspect]
     Indication: DRUG USE FOR UNKNOWN INDICATION
     Route: 058
     Dates: start: 20090429
  2. PLAVIX [Suspect]
     Indication: DRUG USE FOR UNKNOWN INDICATION
     Route: 048
     Dates: start: 20090429, end: 20090529
  3. KARDEGIC                           /00002703/ [Suspect]
     Indication: DRUG USE FOR UNKNOWN INDICATION
     Route: 048
     Dates: start: 20090502
  4. AMIODARONE [Suspect]
     Indication: DRUG USE FOR UNKNOWN INDICATION
     Route: 048
     Dates: start: 20090430, end: 20090511
  5. AMIODARONE [Suspect]
     Route: 048
     Dates: start: 20090525
  6. PARACETAMOL [Suspect]
     Indication: DRUG USE FOR UNKNOWN INDICATION
     Route: 048
     Dates: start: 20090502
  7. BRICANYL [Suspect]
     Indication: DRUG USE FOR UNKNOWN INDICATION
     Route: 055
     Dates: start: 20090429
  8. ATROVENT [Suspect]
     Indication: DRUG USE FOR UNKNOWN INDICATION
     Route: 055
     Dates: start: 20090429
  9. BUMEX [Concomitant]
     Indication: DRUG USE FOR UNKNOWN INDICATION
  10. DOBUTAMINE HCL [Concomitant]
     Indication: DRUG USE FOR UNKNOWN INDICATION
  11. NORADRENALINE [Concomitant]
     Indication: DRUG USE FOR UNKNOWN INDICATION
  12. NEXIUM [Concomitant]
     Indication: DRUG USE FOR UNKNOWN INDICATION
  13. TAHOR [Concomitant]
     Indication: DRUG USE FOR UNKNOWN INDICATION
     Route: 048
  14. ACUPAN [Concomitant]
     Indication: DRUG USE FOR UNKNOWN INDICATION
  15. HEPARIN NOS [Concomitant]
     Indication: DRUG USE FOR UNKNOWN INDICATION
  16. CALCIPARINE [Concomitant]
     Indication: DRUG USE FOR UNKNOWN INDICATION
     Route: 058
  17. ARIXTRA [Concomitant]
     Indication: DRUG USE FOR UNKNOWN INDICATION
     Route: 058
  18. SERETIDE [Concomitant]
     Indication: DRUG USE FOR UNKNOWN INDICATION
     Route: 055
  19. FUROSEMIDE INTENSOL [Concomitant]
     Indication: DRUG USE FOR UNKNOWN INDICATION
     Dates: start: 20090430, end: 20090430
  20. FUROSEMIDE INTENSOL [Concomitant]
     Dates: start: 20090506

REACTIONS (1)
  - EOSINOPHILIA [None]
